FAERS Safety Report 9713345 (Version 2)
Quarter: 2013Q4

REPORT INFORMATION
  Report Type: Spontaneous
  Country: FR (occurrence: FR)
  Receive Date: 20131126
  Receipt Date: 20131205
  Transmission Date: 20140711
  Serious: Yes (Death, Other)
  Sender: FDA-Public Use
  Company Number: FR-PFIZER INC-2013335661

PATIENT
  Age: 42 Year
  Sex: Female

DRUGS (1)
  1. ARGATROBAN [Suspect]
     Dosage: UNK
     Route: 051

REACTIONS (2)
  - Sudden death [Fatal]
  - Cardiac failure [Recovered/Resolved]
